FAERS Safety Report 4345642-7 (Version None)
Quarter: 2004Q2

REPORT INFORMATION
  Report Type: 
  Country: None (occurrence: None)
  Receive Date: 20040421
  Receipt Date: 20040322
  Transmission Date: 20050107
  Serious: Yes (Hospitalization, Other)
  Sender: FDA-Public Use
  Company Number: 2004003040

PATIENT
  Age: 58 Year
  Sex: Female
  Weight: 104.3273 kg

DRUGS (34)
  1. LIPITOR [Suspect]
     Indication: CORONARY ARTERY DISEASE
     Dosage: 80 MG DAILY ORAL
     Route: 048
     Dates: end: 20030214
  2. LIPITOR [Suspect]
     Indication: HYPERLIPIDAEMIA
     Dosage: 80 MG DAILY ORAL
     Route: 048
     Dates: end: 20030214
  3. GUAIFENESIN (GUAIFENESIN) [Suspect]
     Indication: COUGH
  4. ALL OTHER THERAPEUTIC PRODUCTS (ALL OTHER THERAPEUTIC PRODUCTS) [Suspect]
     Indication: ILL-DEFINED DISORDER
     Dates: start: 20030101
  5. MORPHINE SULFATE [Suspect]
     Indication: PAIN
     Dates: end: 20030101
  6. HYDROCODONE (HYDROCODONE) [Suspect]
     Indication: ILL-DEFINED DISORDER
  7. PROMETHAZINE HYDROCHLORIDE TAB [Suspect]
     Indication: ILL-DEFINED DISORDER
  8. INSULIN [Concomitant]
  9. FUROSEMIDE [Concomitant]
  10. VALSARTAN [Concomitant]
  11. CITALOPRAM HYDROBROMIDE [Concomitant]
  12. ASPIRIN [Concomitant]
  13. ESCITALOPRAM [Concomitant]
  14. OXYCOCET (PARACETAMOL, OXYCODONE HYDROCHLORIDE) [Concomitant]
  15. PANTOPRAZOLE [Concomitant]
  16. DEXTROPROPOXYPHENE [Concomitant]
  17. EZETIMIBE [Concomitant]
  18. IBUPROFEN [Concomitant]
  19. SALINE MIXTURE (SODIUM CITRATE, AMMONIUM ACETATE, SODIUM NITRATE, CAMP [Concomitant]
  20. PHENOL [Concomitant]
  21. TUSSIONEX ^LABQUIFAR^ (BROMHEXINE HYDROCHLORIDE, ZIPEPROL) [Concomitant]
  22. ALPRAZOLAM [Concomitant]
  23. VANCOMYCIN [Concomitant]
  24. VICODIN [Concomitant]
  25. GABAPENTIN [Concomitant]
  26. TIAGABINE HYDROCHLORIDE [Concomitant]
  27. LINEZOLID [Concomitant]
  28. HYDROMORPHONE HYDROCHLORIDE [Concomitant]
  29. MORPHINE SULFATE [Concomitant]
  30. NITROFURANTOIN [Concomitant]
  31. ALL OTHER THERAPEUTIC PRODUCTS [Concomitant]
  32. BACTRIM [Concomitant]
  33. TRIMETHOBENZAMIDE HCL [Concomitant]
  34. PROPACET 100 [Concomitant]

REACTIONS (30)
  - ANOREXIA [None]
  - ARTHRALGIA [None]
  - ASTHENIA [None]
  - ASTHMA [None]
  - BACK PAIN [None]
  - BONE PAIN [None]
  - CARDIOMEGALY [None]
  - COUGH [None]
  - DECREASED ACTIVITY [None]
  - DECREASED APPETITE [None]
  - DIABETES MELLITUS INADEQUATE CONTROL [None]
  - DIABETIC NEUROPATHY [None]
  - DILATATION ATRIAL [None]
  - DYSPNOEA [None]
  - ESCHERICHIA INFECTION [None]
  - HEADACHE [None]
  - HEPATIC CIRRHOSIS [None]
  - HEPATITIS GRANULOMATOUS [None]
  - HYPERTENSION [None]
  - MITRAL VALVE INCOMPETENCE [None]
  - MUSCLE SPASMS [None]
  - MYALGIA [None]
  - NAUSEA [None]
  - OEDEMA [None]
  - PULMONARY HYPERTENSION [None]
  - URINARY TRACT INFECTION [None]
  - URINARY TRACT INFECTION FUNGAL [None]
  - VENTRICULAR DYSFUNCTION [None]
  - VOMITING [None]
  - WALKING AID USER [None]
